FAERS Safety Report 5765926-5 (Version None)
Quarter: 2008Q2

REPORT INFORMATION
  Report Type: 
  Country: None (occurrence: None)
  Receive Date: 20080611
  Receipt Date: 20070614
  Transmission Date: 20081010
  Serious: Yes (Hospitalization)
  Sender: FDA-Public Use
  Company Number: US-BRISTOL-MYERS SQUIBB COMPANY-13841036

PATIENT
  Age: 67 Year
  Sex: Female

DRUGS (1)
  1. SINEMET [Suspect]
     Route: 048
     Dates: end: 20030701

REACTIONS (1)
  - LEUKOPENIA [None]
